FAERS Safety Report 5276454-8 (Version None)
Quarter: 2007Q1

REPORT INFORMATION
  Report Type: 
  Country: None (occurrence: None)
  Receive Date: 20061213
  Receipt Date: 20040210
  Transmission Date: 20070707
  Serious: Yes (Hospitalization)
  Sender: FDA-Public Use
  Company Number: 2004UW02381

PATIENT
  Sex: Female
  Weight: 51 kg

DRUGS (6)
  1. SEROQUEL [Suspect]
     Dosage: 325 MG PO
     Route: 048
     Dates: start: 20010901
  2. SEROQUEL [Suspect]
     Dosage: 1900 MG DAILY PO
     Route: 048
  3. PREMARIN [Concomitant]
  4. NORVASC [Concomitant]
  5. HYDRODIURIL [Concomitant]
  6. POTASSIUM ACETATE [Concomitant]

REACTIONS (1)
  - PANCREATITIS [None]
